FAERS Safety Report 11365370 (Version 1)
Quarter: 2015Q3

REPORT INFORMATION
  Report Type: Spontaneous
  Country: US (occurrence: US)
  Receive Date: 20150811
  Receipt Date: 20150811
  Transmission Date: 20151125
  Serious: No
  Sender: FDA-Public Use
  Company Number: US-GLAXOSMITHKLINE-US2015115069

PATIENT
  Age: 57 Year
  Sex: Male

DRUGS (1)
  1. TANZEUM [Suspect]
     Active Substance: ALBIGLUTIDE
     Indication: GLYCOSYLATED HAEMOGLOBIN
     Dosage: 30 MG, WE
     Route: 058
     Dates: start: 20150609, end: 20150708

REACTIONS (2)
  - Vomiting [Recovered/Resolved]
  - Nausea [Unknown]
